FAERS Safety Report 8813524 (Version 1)
Quarter: 2012Q4

REPORT INFORMATION
  Report Type: 
  Country: US (occurrence: US)
  Receive Date: 20120927
  Receipt Date: 20120927
  Transmission Date: 20130627
  Serious: No
  Sender: FDA-Public Use
  Company Number: US-AMGEN-USASP2012038692

PATIENT
  Age: 73 Year
  Sex: Female
  Weight: 55.78 kg

DRUGS (5)
  1. PROLIA [Suspect]
     Indication: OSTEOPOROSIS POSTMENOPAUSAL
     Dosage: 60 mg, q6mo
     Route: 058
     Dates: start: 20120605
  2. VITAMIN E                          /00110501/ [Concomitant]
     Dosage: UNK
  3. FOLIC ACID [Concomitant]
     Dosage: UNK
  4. FISH OIL [Concomitant]
     Dosage: UNK
  5. ASA [Concomitant]
     Dosage: UNK

REACTIONS (5)
  - Palpitations [Recovering/Resolving]
  - Musculoskeletal pain [Recovering/Resolving]
  - Bone pain [Recovering/Resolving]
  - Pain [Recovering/Resolving]
  - Feeling abnormal [Recovering/Resolving]
